FAERS Safety Report 11008278 (Version 1)
Quarter: 2015Q1

REPORT INFORMATION
  Report Type: Spontaneous
  Country: US (occurrence: None)
  Receive Date: 20150313
  Receipt Date: 20150313
  Transmission Date: 20150721
  Serious: Yes (Hospitalization, Other)
  Sender: FDA-Public Use
  Company Number: GNE270816

PATIENT
  Age: 46 Year
  Sex: Female
  Weight: 75.3 kg

DRUGS (8)
  1. ADVAIR DISKUS [Concomitant]
     Active Substance: FLUTICASONE PROPIONATE\SALMETEROL XINAFOATE
  2. XOLAIR [Suspect]
     Active Substance: OMALIZUMAB
     Indication: ASTHMA
     Route: 058
     Dates: start: 20071009
  3. SINGULAIR (MONTELUKAST SODIUM) [Concomitant]
  4. PREDNISONE. [Concomitant]
     Active Substance: PREDNISONE
  5. ALLEGRA (FEXOFINADINE HYDROCHLORIDE) [Concomitant]
  6. PREVACID [Concomitant]
     Active Substance: LANSOPRAZOLE
  7. PYRIDIUM (PHENAZOPYRIDINE HYDROCHLORIDE) [Concomitant]
  8. PREMARINS (ESTROGENS, CONJUGATED) [Concomitant]

REACTIONS (5)
  - Wheezing [None]
  - Erythema [None]
  - Dyspnoea [None]
  - Pruritus [None]
  - Urticaria [None]

NARRATIVE: CASE EVENT DATE: 20071117
